FAERS Safety Report 19698578 (Version 5)
Quarter: 2021Q3

REPORT INFORMATION
  Report Type: Spontaneous
  Country: BR (occurrence: BR)
  Receive Date: 20210813
  Receipt Date: 20210913
  Transmission Date: 20211014
  Serious: Yes (Other)
  Sender: FDA-Public Use
  Company Number: BR-009507513-2108BRA003574

PATIENT
  Age: 44 Year
  Sex: Male
  Weight: 82.5 kg

DRUGS (3)
  1. JANUVIA [Suspect]
     Active Substance: SITAGLIPTIN PHOSPHATE
     Dosage: 3 PILLS (IN THE MORNING, IN THE AFTERNOON AND AT NIGHT)
     Route: 048
     Dates: start: 2021
  2. JANUVIA [Suspect]
     Active Substance: SITAGLIPTIN PHOSPHATE
     Dosage: 1 TABLET DAILY AFTER BREAKFAST
     Route: 048
     Dates: start: 2021
  3. JANUVIA [Suspect]
     Active Substance: SITAGLIPTIN PHOSPHATE
     Indication: DIABETES MELLITUS
     Dosage: 1 TABLET DAILY AFTER THE BREAKFAST
     Route: 048
     Dates: start: 2019

REACTIONS (7)
  - Diabetic blindness [Not Recovered/Not Resolved]
  - Diabetes mellitus inadequate control [Unknown]
  - Product shape issue [Unknown]
  - Intentional product misuse [Unknown]
  - Product identification number issue [Unknown]
  - Blindness [Not Recovered/Not Resolved]
  - Incorrect dose administered [Unknown]

NARRATIVE: CASE EVENT DATE: 2019
